FAERS Safety Report 22942986 (Version 3)
Quarter: 2023Q4

REPORT INFORMATION
  Report Type: Spontaneous
  Country: NL (occurrence: NL)
  Receive Date: 20230914
  Receipt Date: 20231027
  Transmission Date: 20240110
  Serious: Yes (Hospitalization, Other)
  Sender: FDA-Public Use
  Company Number: NL-UNITED THERAPEUTICS-UNT-2023-025702

PATIENT

DRUGS (10)
  1. REMODULIN [Suspect]
     Active Substance: TREPROSTINIL
     Indication: Pulmonary arterial hypertension
     Dosage: UNK (FLOW RATE DECREASED }7.5%), CONTINUING
     Route: 041
     Dates: start: 20230701
  2. REMODULIN [Suspect]
     Active Substance: TREPROSTINIL
     Dosage: UNK  (NORMAL FLOW RATE 1.16-1.17), CONTINUING
     Route: 041
     Dates: start: 2023, end: 2023
  3. REMODULIN [Suspect]
     Active Substance: TREPROSTINIL
     Dosage: UNK (FLOW RATE 0.81 WHICH IS A 30% DEVIATION), CONTINUING
     Route: 041
     Dates: start: 20230904, end: 202309
  4. REMODULIN [Suspect]
     Active Substance: TREPROSTINIL
     Dosage: 0.037 ?G/KG, CONTINUING
     Route: 041
     Dates: start: 202309, end: 202309
  5. REMODULIN [Suspect]
     Active Substance: TREPROSTINIL
     Dosage: 0.025 ?G/KG (UNDERDOSE), CONTINUING
     Route: 041
     Dates: start: 202309, end: 202309
  6. REMODULIN [Suspect]
     Active Substance: TREPROSTINIL
     Dosage: UNK (FLOW RATE 1.36 ), CONTINUING
     Route: 041
     Dates: start: 202309, end: 202309
  7. REMODULIN [Suspect]
     Active Substance: TREPROSTINIL
     Dosage: 0.037 ?G/KG, CONTINUING [INCREASED AGAIN]
     Route: 041
     Dates: start: 202309, end: 202309
  8. REMODULIN [Suspect]
     Active Substance: TREPROSTINIL
     Dosage: UNK (FLOW RATE 1.35 ML/DAY), CONTINUING
     Route: 041
     Dates: start: 20230928, end: 202310
  9. REMODULIN [Suspect]
     Active Substance: TREPROSTINIL
     Dosage: UNK (FLOW RATE 1.30 ML/DAY), CONTINUING
     Route: 041
     Dates: start: 20231016
  10. REMODULIN [Suspect]
     Active Substance: TREPROSTINIL
     Dosage: UNK, CONTINUING
     Route: 041
     Dates: end: 2023

REACTIONS (6)
  - Incorrect drug administration rate [Recovered/Resolved]
  - Incorrect dose administered by device [Recovered/Resolved]
  - Device occlusion [Recovered/Resolved]
  - Device kink [Recovered/Resolved]
  - Device related thrombosis [Recovered/Resolved]
  - Device malfunction [Recovered/Resolved]

NARRATIVE: CASE EVENT DATE: 20230101
